FAERS Safety Report 12302632 (Version 1)
Quarter: 2016Q2

REPORT INFORMATION
  Report Type: Spontaneous
  Country: US (occurrence: US)
  Receive Date: 20160425
  Receipt Date: 20160425
  Transmission Date: 20160815
  Serious: Yes (Other)
  Sender: FDA-Public Use
  Company Number: US-SA-2015SA160421

PATIENT
  Age: 51 Year
  Sex: Male

DRUGS (3)
  1. ALECTINIB [Suspect]
     Active Substance: ALECTINIB
     Indication: NON-SMALL CELL LUNG CANCER
     Route: 048
     Dates: start: 20151001
  2. ALECTINIB [Suspect]
     Active Substance: ALECTINIB
     Indication: NON-SMALL CELL LUNG CANCER
     Route: 048
     Dates: start: 20150808
  3. LOVENOX [Suspect]
     Active Substance: ENOXAPARIN SODIUM
     Dosage: DAILY DOSE: 80MG/0.8 ML
     Route: 065
     Dates: start: 20150807, end: 20151001

REACTIONS (1)
  - Cerebral haematoma [Unknown]

NARRATIVE: CASE EVENT DATE: 20151001
